FAERS Safety Report 8044142-0 (Version None)
Quarter: 2012Q1

REPORT INFORMATION
  Report Type: 
  Country: None (occurrence: None)
  Receive Date: 20120113
  Receipt Date: 20120112
  Transmission Date: 20120608
  Serious: Yes (Death)
  Sender: FDA-Public Use
  Company Number: PHFR2011IE05935

PATIENT
  Sex: Male

DRUGS (15)
  1. FORTICREME [Concomitant]
     Dosage: UNK
  2. ACETAMINOPHEN [Concomitant]
  3. LACTULOSE [Concomitant]
     Dosage: UNK UKN, UNK
  4. CLOZARIL [Suspect]
     Dosage: 150 MG MANE, 325 MG NOCTE
  5. FORTISIP [Concomitant]
  6. DONEPEZIL HCL [Concomitant]
     Dosage: 10 MG, QD
  7. CALOGEN [Concomitant]
  8. CLOZARIL [Suspect]
     Indication: SCHIZOPHRENIA
     Route: 048
     Dates: start: 19960726
  9. COMBIVENT [Concomitant]
  10. VENLAFAXINE [Concomitant]
     Dosage: 225 MG, QD
  11. PANTOPRAZOLE [Concomitant]
  12. MOVIPREP [Concomitant]
  13. HALOPERIDOL [Concomitant]
     Dosage: 2 MG AT NOCTE
  14. DIAZEPAM [Concomitant]
     Dosage: 7 MG, BD (LONG TERM)
  15. VENTOLIN DS [Concomitant]

REACTIONS (3)
  - WEIGHT DECREASED [None]
  - ASTHENIA [None]
  - DEATH [None]
